FAERS Safety Report 4805086-8 (Version None)
Quarter: 2005Q4

REPORT INFORMATION
  Report Type: 
  Country: None (occurrence: None)
  Receive Date: 20051017
  Receipt Date: 20051003
  Transmission Date: 20060501
  Serious: Yes (Hospitalization)
  Sender: FDA-Public Use
  Company Number: 2005BI009557

PATIENT
  Age: 60 Year
  Sex: Female

DRUGS (6)
  1. AVONEX LIQUID [Suspect]
     Indication: MULTIPLE SCLEROSIS
     Dosage: 30 UG;QW; IM
     Route: 030
     Dates: start: 20040903
  2. FOLIC ACID [Concomitant]
  3. VIACTIV [Concomitant]
  4. CENTRUM SILVER [Concomitant]
  5. HORMONE REPLACEMENT [Concomitant]
  6. THERAPY [Concomitant]

REACTIONS (6)
  - BLOOD CHOLESTEROL INCREASED [None]
  - CEREBROVASCULAR ACCIDENT [None]
  - CONDITION AGGRAVATED [None]
  - HYPOVOLAEMIA [None]
  - ISCHAEMIC STROKE [None]
  - MULTIPLE SCLEROSIS [None]
